FAERS Safety Report 8815192 (Version 3)
Quarter: 2013Q1

REPORT INFORMATION
  Report Type: Spontaneous
  Country: DE (occurrence: DE)
  Receive Date: 20120928
  Receipt Date: 20130228
  Transmission Date: 20140127
  Serious: Yes (Hospitalization)
  Sender: FDA-Public Use
  Company Number: DE-JNJFOC-20120912201

PATIENT
  Age: 77 Year
  Sex: Male
  Weight: 85 kg

DRUGS (15)
  1. XARELTO [Suspect]
     Indication: CEREBROVASCULAR ACCIDENT PROPHYLAXIS
     Route: 048
     Dates: start: 20120428, end: 20120515
  2. XARELTO [Suspect]
     Indication: ATRIAL FIBRILLATION
     Route: 048
     Dates: start: 20120428, end: 20120515
  3. HUMALOG [Concomitant]
     Dosage: 0.300 IU/L
     Route: 065
     Dates: start: 20120306
  4. LANTUS [Concomitant]
     Dosage: 0.1IU/L
     Route: 065
     Dates: start: 20110323
  5. TORASEMID [Concomitant]
     Dosage: 0.1IU/L
     Route: 065
     Dates: start: 20111110
  6. ALLOPURINOL [Concomitant]
     Route: 065
  7. ALLOPURINOL [Concomitant]
     Dosage: 0.1IU/L
     Route: 065
     Dates: start: 20090720
  8. DEKRISTOL [Concomitant]
     Dosage: 0.1IU/L
     Route: 065
     Dates: start: 20090720
  9. SIMVASTATIN [Concomitant]
     Dosage: 0.1IU/L
     Route: 065
     Dates: start: 20100719
  10. OMEPRAZOLE [Concomitant]
     Dosage: 0.1IU/L
     Route: 065
     Dates: start: 20110309
  11. NITROLINGUAL [Concomitant]
     Dosage: 0.1IU/L
     Route: 065
     Dates: start: 20110720
  12. ASS [Concomitant]
     Indication: CORONARY ARTERY DISEASE
     Dosage: 0.1IU/L
     Route: 065
     Dates: start: 20090722
  13. CLOPIDOGREL [Concomitant]
     Indication: PERCUTANEOUS CORONARY INTERVENTION
     Dosage: 0.1IU/L
     Route: 048
     Dates: start: 20110905
  14. CARVEDILOL [Concomitant]
     Indication: CORONARY ARTERY DISEASE
     Dosage: 0.1IU/L
     Route: 048
     Dates: start: 20090920
  15. LISINOPRIL [Concomitant]
     Indication: HYPERTENSION
     Dosage: 0.1IU/L
     Route: 065
     Dates: start: 20110905

REACTIONS (2)
  - Urticaria [Unknown]
  - Rash [Recovered/Resolved]
